FAERS Safety Report 7593944-3 (Version None)
Quarter: 2011Q3

REPORT INFORMATION
  Report Type: 
  Country: None (occurrence: None)
  Receive Date: 20110706
  Receipt Date: 20110630
  Transmission Date: 20111222
  Serious: Yes (Hospitalization)
  Sender: FDA-Public Use
  Company Number: JP-ABBOTT-10P-087-0690073-00

PATIENT
  Sex: Female
  Weight: 43 kg

DRUGS (10)
  1. CHINESE HERBAL MEDICINE [Concomitant]
     Indication: PRODUCT USED FOR UNKNOWN INDICATION
  2. METHOTREXATE [Concomitant]
     Indication: RHEUMATOID ARTHRITIS
     Route: 048
  3. CLOPIDOGREL [Concomitant]
     Indication: CEREBRAL ISCHAEMIA
  4. FOLIC ACID [Concomitant]
     Indication: PROPHYLAXIS
  5. TACROLIMUS [Concomitant]
     Indication: RHEUMATOID ARTHRITIS
  6. POLAPREZINC [Concomitant]
     Indication: GASTRIC ULCER
  7. SODIUM RISEDRONATE HYDRATE [Concomitant]
     Indication: OSTEOPOROSIS
  8. HUMIRA [Suspect]
     Indication: RHEUMATOID ARTHRITIS
     Route: 058
     Dates: start: 20090717
  9. FOLIC ACID [Concomitant]
     Indication: ADVERSE REACTION
  10. ALFACALCIDOL [Concomitant]
     Indication: PRODUCT USED FOR UNKNOWN INDICATION

REACTIONS (1)
  - AORTIC DISSECTION [None]
